FAERS Safety Report 18889103 (Version 1)
Quarter: 2021Q1

REPORT INFORMATION
  Report Type: Spontaneous
  Country: US (occurrence: US)
  Receive Date: 20210213
  Receipt Date: 20210213
  Transmission Date: 20210420
  Serious: No
  Sender: FDA-Public Use
  Company Number: US-SA-2021SA046396

PATIENT
  Age: 60 Year
  Sex: Male

DRUGS (4)
  1. LOVENOX [Suspect]
     Active Substance: ENOXAPARIN SODIUM
     Indication: THROMBOSIS
  2. LOVENOX [Suspect]
     Active Substance: ENOXAPARIN SODIUM
     Indication: PULMONARY EMBOLISM
  3. LOVENOX [Suspect]
     Active Substance: ENOXAPARIN SODIUM
     Indication: CEREBROVASCULAR ACCIDENT
     Dosage: 100 MG, BID
     Dates: start: 202012
  4. LOVENOX [Suspect]
     Active Substance: ENOXAPARIN SODIUM
     Indication: DEEP VEIN THROMBOSIS

REACTIONS (1)
  - Product storage error [Unknown]
